FAERS Safety Report 5603810-8 (Version None)
Quarter: 2008Q1

REPORT INFORMATION
  Report Type: 
  Country: None (occurrence: None)
  Receive Date: 20080122
  Receipt Date: 20071129
  Transmission Date: 20080703
  Serious: Yes (Other)
  Sender: FDA-Public Use
  Company Number: 2007EN000286

PATIENT
  Age: 41 Year
  Sex: Male

DRUGS (9)
  1. OPANA ER [Suspect]
     Dosage: 20 MG;X1; 5 MG;Q12H; 10 MG;Q8H; BID;
     Dates: start: 20070901, end: 20071001
  2. OPANA ER [Suspect]
     Dosage: 20 MG;X1; 5 MG;Q12H; 10 MG;Q8H; BID;
     Dates: start: 20071001, end: 20071112
  3. OPANA ER [Suspect]
     Dosage: 20 MG;X1; 5 MG;Q12H; 10 MG;Q8H; BID;
     Dates: start: 20071113, end: 20071113
  4. OPANA ER [Suspect]
     Dosage: 20 MG;X1; 5 MG;Q12H; 10 MG;Q8H; BID;
     Dates: start: 20071114, end: 20071129
  5. ZANAFLEX [Concomitant]
  6. LOTREL [Concomitant]
  7. NEXIUM [Concomitant]
  8. VYTORIN [Concomitant]
  9. LYRICA [Concomitant]

REACTIONS (4)
  - COLD SWEAT [None]
  - FEELING ABNORMAL [None]
  - HEART RATE DECREASED [None]
  - WRONG TECHNIQUE IN DRUG USAGE PROCESS [None]
